FAERS Safety Report 4819637-0 (Version None)
Quarter: 2005Q4

REPORT INFORMATION
  Report Type: 
  Country: None (occurrence: None)
  Receive Date: 20051102
  Receipt Date: 20051102
  Transmission Date: 20060501
  Serious: Yes (Hospitalization)
  Sender: FDA-Public Use
  Company Number: None

PATIENT
  Age: 69 Year
  Sex: Male
  Weight: 89.3 kg

DRUGS (2)
  1. CISPLATIN [Suspect]
     Indication: NEOPLASM MALIGNANT
     Dosage: 50 MG /M2 ON 4 DAYS
     Dates: start: 20050608, end: 20050807
  2. ETOPSODE [Concomitant]
     Dosage: 50 MG BID

REACTIONS (5)
  - ANAEMIA [None]
  - DYSPNOEA [None]
  - HAEMODYNAMIC INSTABILITY [None]
  - LOSS OF CONSCIOUSNESS [None]
  - TACHYCARDIA [None]
